FAERS Safety Report 6268528-X (Version None)
Quarter: 2009Q3

REPORT INFORMATION
  Report Type: 
  Country: None (occurrence: None)
  Receive Date: 20090715
  Receipt Date: 20090702
  Transmission Date: 20100115
  Serious: Yes (Other)
  Sender: FDA-Public Use
  Company Number: US-PFIZER INC-2009237099

PATIENT
  Sex: Female
  Weight: 67 kg

DRUGS (6)
  1. PROVERA [Suspect]
     Indication: HORMONE REPLACEMENT THERAPY
     Dosage: UNK
     Route: 048
     Dates: start: 19980906, end: 20020201
  2. PREMARIN [Suspect]
     Indication: HORMONE REPLACEMENT THERAPY
     Dosage: UNK
     Dates: start: 19980906, end: 20020201
  3. PREMPRO [Suspect]
     Indication: HORMONE REPLACEMENT THERAPY
     Dosage: UNK
     Dates: start: 19980101, end: 20020101
  4. NIFEDIPINE [Concomitant]
     Indication: HYPERTENSION
     Dosage: UNK
     Dates: start: 19981001
  5. LOPRESSOR [Concomitant]
     Indication: CARDIAC MURMUR
     Dosage: UNK
     Dates: start: 19951001
  6. ALLOPURINOL [Concomitant]
     Indication: ARTHRITIS
     Dosage: UNK
     Dates: start: 19981001

REACTIONS (1)
  - BREAST CANCER FEMALE [None]
